FAERS Safety Report 11972182 (Version 2)
Quarter: 2016Q2

REPORT INFORMATION
  Report Type: Report from Study
  Country: US (occurrence: US)
  Receive Date: 20160128
  Receipt Date: 20160406
  Transmission Date: 20160815
  Serious: Yes (Hospitalization, Other)
  Sender: FDA-Public Use
  Company Number: PHEH2016US002155

PATIENT
  Age: 74 Year
  Sex: Female

DRUGS (1)
  1. PROMACTA [Suspect]
     Active Substance: ELTROMBOPAG OLAMINE
     Indication: PLATELET COUNT DECREASED
     Dosage: 50 MG, BID
     Route: 048

REACTIONS (8)
  - Bladder disorder [Unknown]
  - Diarrhoea [Unknown]
  - Sepsis [Unknown]
  - Renal disorder [Unknown]
  - Feeding disorder [Unknown]
  - Respiratory failure [Unknown]
  - Gastrointestinal infection [Unknown]
  - Asthenia [Unknown]

NARRATIVE: CASE EVENT DATE: 20160328
